FAERS Safety Report 18766280 (Version 1)
Quarter: 2021Q1

REPORT INFORMATION
  Report Type: Spontaneous
  Country: US (occurrence: US)
  Receive Date: 20210121
  Receipt Date: 20210121
  Transmission Date: 20210419
  Serious: Yes (Hospitalization)
  Sender: FDA-Public Use
  Company Number: US-EMD SERONO-237108K09USA

PATIENT
  Age: 53 Year
  Sex: Female

DRUGS (9)
  1. KLONOPIN [Concomitant]
     Active Substance: CLONAZEPAM
     Indication: ANXIETY
  2. TIZANIDINE. [Concomitant]
     Active Substance: TIZANIDINE
     Indication: SLEEP DISORDER
  3. LEXAPRO [Concomitant]
     Active Substance: ESCITALOPRAM OXALATE
     Indication: DEPRESSION
  4. REBIF [Suspect]
     Active Substance: INTERFERON BETA-1A
     Indication: MULTIPLE SCLEROSIS
     Dosage: PREFILLED SYRINGE
     Route: 058
     Dates: start: 20060705
  5. IBUPROFEN. [Concomitant]
     Active Substance: IBUPROFEN
     Indication: PREMEDICATION
     Dates: start: 2006
  6. SOLU?MEDROL [Suspect]
     Active Substance: METHYLPREDNISOLONE SODIUM SUCCINATE
     Indication: MULTIPLE SCLEROSIS RELAPSE
     Dosage: THERAPY START DATE: 29?JUN?2009
     Route: 042
     Dates: end: 20090702
  7. ATENOLOL. [Concomitant]
     Active Substance: ATENOLOL
     Indication: PALPITATIONS
  8. VISTARIL [Concomitant]
     Active Substance: HYDROXYZINE PAMOATE
     Indication: PREMEDICATION
     Dates: start: 2006
  9. NAPROXEN. [Concomitant]
     Active Substance: NAPROXEN
     Indication: HEADACHE

REACTIONS (11)
  - Neck pain [Recovered/Resolved]
  - Psychomotor hyperactivity [Unknown]
  - Multiple sclerosis relapse [Recovered/Resolved]
  - Headache [Recovered/Resolved]
  - Erythema [Unknown]
  - Insomnia [Unknown]
  - Irritability [Unknown]
  - Feeling abnormal [Recovered/Resolved]
  - Crying [Recovered/Resolved]
  - Hyperhidrosis [Unknown]
  - Blood glucose increased [Recovered/Resolved]

NARRATIVE: CASE EVENT DATE: 2009
